FAERS Safety Report 7747139-0 (Version None)
Quarter: 2011Q3

REPORT INFORMATION
  Report Type: 
  Country: None (occurrence: None)
  Receive Date: 20110907
  Receipt Date: 20110830
  Transmission Date: 20111222
  Serious: Yes (Disabling, Other)
  Sender: FDA-Public Use
  Company Number: 2011HGS-002406

PATIENT
  Age: 69 Year
  Sex: Female
  Weight: 70 kg

DRUGS (20)
  1. VITAMIN D (ERGOCACIFEROL) (ERGOCACLIFEROL) [Concomitant]
  2. SAVELLA (MILNACIPRAN  HYDROCHLORIDE) (MILNACIPRAN HYDROCHLORIDE) [Concomitant]
  3. BENLYSTA [Suspect]
     Indication: SYSTEMIC LUPUS ERYTHEMATOSUS
     Dosage: 10 MG/KG, 1IN 14 D, INTRAVENOUS DRIP
     Route: 041
     Dates: start: 20110630, end: 20110630
  4. DEXA METHADROL (METHYPREDNISOLONE) (METHYLPREDNISOLONE) [Concomitant]
  5. FENTANYL [Concomitant]
  6. ADDERALL (OBETROL) (DEXAMFETAMINE SULFATE, AMFETAMINE SULFATE, DEXAMFE [Concomitant]
  7. BENADRYL (DIPHENHYDRAMINE HYDROCHLORIDE) (DIPHENHYDRAMINE HYDROCHLORID [Concomitant]
  8. LYRICA [Concomitant]
  9. OMEPRAZOLE [Concomitant]
  10. PROCARDO XL (NIFEDIPINE) (NIFEDIPINE) [Concomitant]
  11. WELLBUTRIN XL (BUPROPION HYDROCHLORIDE) (BUPROPION HYDROCHLORIDE) [Concomitant]
  12. LEXAPRO (ESCITALOPRAM OXALATE) (ESCITALOPRAM OXALATE) [Concomitant]
  13. SYNTRHROID (LEVOTHYROXINE SODIUM) (LEVOTHYROXINE SODIUM) [Concomitant]
  14. ZYPREXA [Concomitant]
  15. SPIRIVA (TIOTROPIUM BROMIDE) (TIOTROPIUM BROMIDE) [Concomitant]
  16. FOSAMAX [Concomitant]
  17. LORTAB (VICODIN) (PARACETAMOL, HYDROCODONE BITARTRATE) [Concomitant]
  18. XANAX [Concomitant]
  19. ACYCLOVIR (ACICLOVIR) (ACICLOVIR) [Concomitant]
  20. CYCLOSPORIN A (CICLOSPORIN) (CICLOSPORIN) [Concomitant]

REACTIONS (9)
  - DEVICE EXPULSION [None]
  - ASTHENIA [None]
  - DYSPNOEA [None]
  - SWOLLEN TONGUE [None]
  - COUGH [None]
  - OEDEMA PERIPHERAL [None]
  - INFUSION RELATED REACTION [None]
  - LOCAL SWELLING [None]
  - SWELLING FACE [None]
